FAERS Safety Report 21406151 (Version 2)
Quarter: 2022Q4

REPORT INFORMATION
  Report Type: Report from Study
  Country: BR (occurrence: BR)
  Receive Date: 20221004
  Receipt Date: 20221102
  Transmission Date: 20230113
  Serious: Yes (Hospitalization, Other)
  Sender: FDA-Public Use
  Company Number: BR-ABBVIE-4135300

PATIENT
  Sex: Female
  Weight: 76 kg

DRUGS (4)
  1. HUMIRA [Suspect]
     Active Substance: ADALIMUMAB
     Indication: Axial spondyloarthritis
     Route: 058
     Dates: start: 20200106, end: 202210
  2. DEFLAZACORT [Concomitant]
     Active Substance: DEFLAZACORT
     Indication: Product used for unknown indication
  3. LEFLUNOMIDE [Concomitant]
     Active Substance: LEFLUNOMIDE
     Indication: Product used for unknown indication
  4. CALCIUM [Concomitant]
     Active Substance: CALCIUM
     Indication: Product used for unknown indication

REACTIONS (10)
  - Loss of consciousness [Recovered/Resolved]
  - Nervousness [Recovered/Resolved]
  - Pain in extremity [Recovered/Resolved]
  - Tendonitis [Recovered/Resolved]
  - Foot fracture [Recovering/Resolving]
  - Blood pressure decreased [Recovered/Resolved]
  - Blood cholesterol increased [Recovered/Resolved]
  - Blood cholesterol decreased [Unknown]
  - Adverse food reaction [Unknown]
  - Fall [Unknown]

NARRATIVE: CASE EVENT DATE: 20220101
